FAERS Safety Report 13749614 (Version 1)
Quarter: 2017Q3

REPORT INFORMATION
  Report Type: Spontaneous
  Country: NL (occurrence: NL)
  Receive Date: 20170713
  Receipt Date: 20170713
  Transmission Date: 20171127
  Serious: Yes (Death, Hospitalization)
  Sender: FDA-Public Use
  Company Number: NL-ACTELION-A-CH2017-156301

PATIENT
  Age: 61 Year
  Sex: Female

DRUGS (13)
  1. ESOMEPRAZOLE [Concomitant]
     Active Substance: ESOMEPRAZOLE
     Dosage: 40 MG, BID
     Route: 048
     Dates: start: 20170309
  2. CLOPIDOGREL [Concomitant]
     Active Substance: CLOPIDOGREL BISULFATE
     Dosage: 75 MG, OD
     Route: 048
     Dates: start: 20170309
  3. EZETIMIBE/SIMVASTATIN [Concomitant]
     Active Substance: EZETIMIBE\SIMVASTATIN
     Dosage: UNK, OD
     Route: 048
     Dates: start: 20170309
  4. PARACETAMOL [Concomitant]
     Active Substance: ACETAMINOPHEN
     Dosage: 1000 MG, QID
     Route: 048
     Dates: start: 20170309
  5. FOLIC ACID. [Concomitant]
     Active Substance: FOLIC ACID
     Dosage: UNK UNK, OD
     Route: 048
     Dates: start: 20170309
  6. ZOLEDRONIC ACID. [Concomitant]
     Active Substance: ZOLEDRONIC ACID
     Dosage: 5 MG, UNK
     Route: 042
     Dates: start: 20170327
  7. TRACLEER [Suspect]
     Active Substance: BOSENTAN
     Indication: SCLERODERMA ASSOCIATED DIGITAL ULCER
     Dosage: 125 MG, BID
     Route: 048
     Dates: start: 20170309, end: 20170614
  8. CHOLECALCIFEROL [Concomitant]
     Active Substance: CHOLECALCIFEROL
     Dosage: 400 IU, OD
     Route: 048
     Dates: start: 20170309
  9. PYRIDOXIN [Concomitant]
     Active Substance: PYRIDOXINE
     Dosage: 50 MG, OD
     Route: 048
     Dates: start: 20170309
  10. PREDNISOLONE. [Concomitant]
     Active Substance: PREDNISOLONE
     Dosage: 5 MG, BID
     Route: 048
     Dates: start: 20170327
  11. CARBASALATE CALCIUM [Concomitant]
     Active Substance: CARBASPIRIN
     Dosage: 100 MG, OD
     Dates: start: 20170309
  12. OXYCODONE [Concomitant]
     Active Substance: OXYCODONE
     Dosage: 10 MG, BID
     Route: 048
     Dates: start: 20170309
  13. MACROGOL W/SODIUM CITRATE/SODIUM LAURYL SULFA [Concomitant]
     Dosage: UNK, BID
     Route: 048
     Dates: start: 20170309

REACTIONS (3)
  - Snoring [Fatal]
  - Unresponsive to stimuli [Fatal]
  - Cerebral haemorrhage [Fatal]

NARRATIVE: CASE EVENT DATE: 20170614
